FAERS Safety Report 18661122 (Version 1)
Quarter: 2020Q4

REPORT INFORMATION
  Report Type: Spontaneous
  Country: US (occurrence: US)
  Receive Date: 20201224
  Receipt Date: 20201224
  Transmission Date: 20210114
  Serious: No
  Sender: FDA-Public Use
  Company Number: US-ASTRAZENECA-2020SF61554

PATIENT
  Sex: Female

DRUGS (1)
  1. SYMBICORT [Suspect]
     Active Substance: BUDESONIDE\FORMOTEROL FUMARATE DIHYDRATE
     Dosage: 80/4.5 MCG WITH 60 INHALATIONS UNKNOWN UNKNOWN
     Route: 055

REACTIONS (3)
  - Wheezing [Not Recovered/Not Resolved]
  - Product dispensing error [Unknown]
  - Dyspnoea [Unknown]
